FAERS Safety Report 22293550 (Version 1)
Quarter: 2023Q2

REPORT INFORMATION
  Report Type: Spontaneous
  Country: US (occurrence: US)
  Receive Date: 20230508
  Receipt Date: 20230508
  Transmission Date: 20230722
  Serious: Yes (Hospitalization, Other)
  Sender: FDA-Public Use
  Company Number: US-GSK-US2023063319

PATIENT

DRUGS (2)
  1. TRELEGY ELLIPTA [Suspect]
     Active Substance: FLUTICASONE FUROATE\UMECLIDINIUM BROMIDE\VILANTEROL TRIFENATATE
     Indication: Chronic obstructive pulmonary disease
     Dosage: UNK 100/62.5/25 MCG
  2. TRESIBA [Concomitant]
     Active Substance: INSULIN DEGLUDEC
     Indication: Diabetes mellitus
     Dosage: 200U/ML
     Route: 042

REACTIONS (5)
  - Fall [Recovering/Resolving]
  - Facial bones fracture [Unknown]
  - Contusion [Unknown]
  - Rib fracture [Unknown]
  - Hand fracture [Unknown]

NARRATIVE: CASE EVENT DATE: 20230419
